FAERS Safety Report 5134516-X (Version None)
Quarter: 2006Q4

REPORT INFORMATION
  Report Type: 
  Country: None (occurrence: None)
  Receive Date: 20061023
  Receipt Date: 20061023
  Transmission Date: 20070319
  Serious: No
  Sender: FDA-Public Use
  Company Number: None

PATIENT
  Sex: Female
  Weight: 41.7309 kg

DRUGS (1)
  1. FORTICAL [Suspect]
     Indication: OSTEOPOROSIS
     Dosage: ONE SQUIRT  DAILY  NOSTRIL
     Route: 045
     Dates: start: 20060413, end: 20061005

REACTIONS (11)
  - ALOPECIA [None]
  - ARTHRALGIA [None]
  - FLATULENCE [None]
  - GASTROINTESTINAL PAIN [None]
  - HYPERHIDROSIS [None]
  - MYALGIA [None]
  - PAIN [None]
  - PALPITATIONS [None]
  - THIRST [None]
  - VISION BLURRED [None]
  - WEIGHT DECREASED [None]
